FAERS Safety Report 19588935 (Version 4)
Quarter: 2023Q2

REPORT INFORMATION
  Report Type: Report from Study
  Country: US (occurrence: None)
  Receive Date: 20210721
  Receipt Date: 20230404
  Transmission Date: 20230721
  Serious: Yes (Other)
  Sender: FDA-Public Use
  Company Number: US-ROCHE-2866505

PATIENT
  Age: 58 Year
  Sex: Female

DRUGS (15)
  1. COBIMETINIB [Suspect]
     Active Substance: COBIMETINIB
     Indication: Neoplasm malignant
     Dosage: ORALLY ONCE DAILY (MORNING) ON DAYS 1-21 OF EACH 28-DAY
     Route: 048
     Dates: start: 20210615, end: 20210705
  2. COBIMETINIB [Suspect]
     Active Substance: COBIMETINIB
     Route: 048
     Dates: start: 20210720
  3. HYDROXYCHLOROQUINE [Suspect]
     Active Substance: HYDROXYCHLOROQUINE
     Indication: Neoplasm malignant
     Dosage: ORALLY TWICE DAILY ON DAYS 1-28 OF EACH 28-DAY CYCLE
     Route: 048
     Dates: start: 20210615, end: 20210705
  4. HYDROXYCHLOROQUINE [Suspect]
     Active Substance: HYDROXYCHLOROQUINE
     Dosage: C2D1
     Route: 048
     Dates: start: 20210720
  5. NORVASC [Concomitant]
     Active Substance: AMLODIPINE BESYLATE
  6. BETAMETHASONE DIPROPIONATE [Concomitant]
     Active Substance: BETAMETHASONE DIPROPIONATE
  7. CREON [Concomitant]
     Active Substance: PANCRELIPASE AMYLASE\PANCRELIPASE LIPASE\PANCRELIPASE PROTEASE
  8. LOVENOX [Concomitant]
     Active Substance: ENOXAPARIN SODIUM
  9. OXYCODONE [Concomitant]
     Active Substance: OXYCODONE
  10. PREDNISONE [Concomitant]
     Active Substance: PREDNISONE
  11. SODIUM CHLORIDE [Concomitant]
     Active Substance: SODIUM CHLORIDE
  12. DOXYCYCLINE [Concomitant]
     Active Substance: DOXYCYCLINE
  13. DIPHENHYDRAMINE [Concomitant]
     Active Substance: DIPHENHYDRAMINE
  14. CARAFATE [Concomitant]
     Active Substance: SUCRALFATE
  15. NYSTATIN [Concomitant]
     Active Substance: NYSTATIN

REACTIONS (2)
  - Rash pustular [Recovered/Resolved]
  - Dermatitis bullous [Recovered/Resolved]

NARRATIVE: CASE EVENT DATE: 20210706
